FAERS Safety Report 6047274-1 (Version None)
Quarter: 2009Q1

REPORT INFORMATION
  Report Type: 
  Country: None (occurrence: None)
  Receive Date: 20090122
  Receipt Date: 20090109
  Transmission Date: 20090719
  Serious: Yes (Hospitalization)
  Sender: FDA-Public Use
  Company Number: US-ELI_LILLY_AND_COMPANY-US200812005348

PATIENT
  Sex: Female

DRUGS (4)
  1. ZYPREXA [Suspect]
     Indication: SCHIZOPHRENIA
     Dosage: 20 MG, DAILY (1/D)
     Dates: start: 19960101, end: 20080901
  2. ZYPREXA [Suspect]
     Dosage: 30 MG, DAILY (1/D)
     Dates: start: 20080901
  3. KLONOPIN [Concomitant]
  4. ANTIPSYCHOTICS [Concomitant]

REACTIONS (5)
  - AGGRESSION [None]
  - DRUG EFFECT DECREASED [None]
  - HOSPITALISATION [None]
  - OVERDOSE [None]
  - SCHIZOPHRENIA [None]
